FAERS Safety Report 9848940 (Version 1)
Quarter: 2014Q1

REPORT INFORMATION
  Report Type: Spontaneous
  Country: US (occurrence: None)
  Receive Date: 20140124
  Receipt Date: 20140124
  Transmission Date: 20141002
  Serious: Yes (Hospitalization)
  Sender: FDA-Public Use
  Company Number: None

PATIENT
  Age: 48 None
  Sex: Male
  Weight: 52.7 kg

DRUGS (20)
  1. PROLIA [Suspect]
     Indication: OSTEOPOROSIS
     Dosage: EVERY 6 MONTHS?,13SEP2012, 13MAR2013, 13SEP2013
     Route: 058
     Dates: start: 20120313
  2. ACETAMINOPHEN [Concomitant]
  3. BACLOFEN [Concomitant]
  4. CALCIUM [Concomitant]
  5. CARBAMAZEPINE ER [Concomitant]
  6. CHOLECALCIFEROL [Concomitant]
  7. BISACODYL 10 MG SUPPOSITORY [Concomitant]
  8. PHOSPHATE ENEMA [Concomitant]
  9. IPRATROPIUM 0.02%  INHALAATION SOLUTION PRN [Concomitant]
  10. LACOSAMIDE 200MG [Concomitant]
  11. LEVETIRACETAM [Concomitant]
  12. MIDAZOLAM [Concomitant]
  13. MILK OF MAGNESIA [Concomitant]
  14. NORMAL SALINE NASAL SPRAY [Concomitant]
  15. OSELTAMIVIR [Concomitant]
  16. PANTOPRAZOLE [Concomitant]
  17. POLYETHYLENE GLYCOL [Concomitant]
  18. SENNA SYRUP [Concomitant]
  19. TOPIRAMATE [Concomitant]
  20. VITAMIN/MINERAL [Concomitant]

REACTIONS (1)
  - Pancreatitis [None]
